FAERS Safety Report 9026960 (Version 1)
Quarter: 2013Q1

REPORT INFORMATION
  Report Type: Spontaneous
  Country: US (occurrence: US)
  Receive Date: 20130123
  Receipt Date: 20130123
  Transmission Date: 20140127
  Serious: Yes (Hospitalization)
  Sender: FDA-Public Use
  Company Number: US-BAYER-2013-008183

PATIENT
  Age: 32 Year
  Sex: Female
  Weight: 72.11 kg

DRUGS (8)
  1. BEYAZ [Suspect]
  2. YAZ [Suspect]
  3. PROZAC [Concomitant]
     Dosage: 40 MG, DAILY
  4. CLONIDINE [Concomitant]
     Dosage: 0.1 MG, TID
  5. LEVOFLOXACIN [Concomitant]
     Dosage: 500 MG, DAILY
  6. LEVOTHYROXINE [Concomitant]
     Dosage: 50 MCG DAILY
     Route: 048
  7. KLONOPIN [Concomitant]
     Dosage: 1 MG, TID
     Route: 048
  8. SYNTHROID [Concomitant]

REACTIONS (1)
  - Ovarian vein thrombosis [None]
